FAERS Safety Report 9252808 (Version 1)
Quarter: 2013Q1

REPORT INFORMATION
  Report Type: Spontaneous
  Country: US (occurrence: None)
  Receive Date: 20130305
  Receipt Date: 20130305
  Transmission Date: 20140127
  Serious: Yes (Other)
  Sender: FDA-Public Use
  Company Number: 163-21880-12043018

PATIENT
  Age: 75 Year
  Sex: Male
  Weight: 63.5 kg

DRUGS (4)
  1. REVLIMID [Suspect]
     Indication: MYELODYSPLASTIC SYNDROME
     Dosage: 5 MG, 1 IN 1 D
     Route: 048
     Dates: start: 200812
  2. EXCEDERIN (EXCEDRIN / USA) [Concomitant]
  3. MOTRIN (IBUPROFEN) [Concomitant]
  4. ULCER MEDS (DRUGS FOR TREATMENT OF PEPTIC ULCER) [Concomitant]

REACTIONS (3)
  - Weight decreased [None]
  - Diarrhoea [None]
  - Amnesia [None]
